FAERS Safety Report 13533175 (Version 2)
Quarter: 2017Q2

REPORT INFORMATION
  Report Type: Spontaneous
  Country: CN (occurrence: CN)
  Receive Date: 20170510
  Receipt Date: 20170518
  Transmission Date: 20170830
  Serious: Yes (Death, Life-Threatening, Hospitalization, Other)
  Sender: FDA-Public Use
  Company Number: CN-SA-2017SA082732

PATIENT
  Age: 48 Year
  Sex: Male

DRUGS (9)
  1. NEDAPLATIN [Suspect]
     Active Substance: NEDAPLATIN
     Indication: GASTRIC CANCER
     Route: 065
  2. NEDAPLATIN [Suspect]
     Active Substance: NEDAPLATIN
     Indication: OESOPHAGEAL CANCER METASTATIC
     Route: 065
  3. NEDAPLATIN [Suspect]
     Active Substance: NEDAPLATIN
     Indication: SQUAMOUS CELL CARCINOMA
     Route: 065
  4. DOCETAXEL. [Suspect]
     Active Substance: DOCETAXEL
     Indication: SQUAMOUS CELL CARCINOMA
     Route: 065
  5. CISPLATIN. [Suspect]
     Active Substance: CISPLATIN
     Indication: GASTRIC CANCER
     Route: 065
  6. DOCETAXEL. [Suspect]
     Active Substance: DOCETAXEL
     Indication: GASTRIC CANCER
     Route: 065
  7. CISPLATIN. [Suspect]
     Active Substance: CISPLATIN
     Indication: OESOPHAGEAL CANCER METASTATIC
     Route: 065
  8. DOCETAXEL. [Suspect]
     Active Substance: DOCETAXEL
     Indication: OESOPHAGEAL CANCER METASTATIC
     Route: 065
  9. CISPLATIN. [Suspect]
     Active Substance: CISPLATIN
     Indication: SQUAMOUS CELL CARCINOMA
     Route: 065

REACTIONS (14)
  - Aorto-oesophageal fistula [Fatal]
  - Tachycardia [Fatal]
  - Haematemesis [Fatal]
  - Coagulopathy [Fatal]
  - Hypotension [Fatal]
  - Haematochezia [Fatal]
  - Coma [Fatal]
  - Haemorrhage [Fatal]
  - Anaemia [Recovered/Resolved]
  - Hepatic failure [Fatal]
  - Disseminated intravascular coagulation [Fatal]
  - Peripheral coldness [Fatal]
  - Multiple organ dysfunction syndrome [Fatal]
  - Acute kidney injury [Fatal]
